FAERS Safety Report 25251767 (Version 1)
Quarter: 2025Q2

REPORT INFORMATION
  Report Type: Report from Study
  Country: IN (occurrence: IN)
  Receive Date: 20250429
  Receipt Date: 20250429
  Transmission Date: 20250717
  Serious: Yes (Death, Life-Threatening, Other)
  Sender: AMGEN
  Company Number: IN-AMGEN-INDSL2025084010

PATIENT
  Age: 68 Year
  Sex: Female

DRUGS (1)
  1. VECTIBIX [Suspect]
     Active Substance: PANITUMUMAB
     Indication: Colorectal cancer metastatic
     Route: 040
     Dates: start: 20241210, end: 202502

REACTIONS (1)
  - Hepatic failure [Fatal]
